FAERS Safety Report 13928492 (Version 1)
Quarter: 2017Q3

REPORT INFORMATION
  Report Type: Spontaneous
  Country: US (occurrence: None)
  Receive Date: 20170901
  Receipt Date: 20170901
  Transmission Date: 20171127
  Serious: Yes (Life-Threatening, Hospitalization, Disabling)
  Sender: FDA-Public Use
  Company Number: None

PATIENT
  Age: 80 Year
  Sex: Male
  Weight: 79.38 kg

DRUGS (6)
  1. METOPROLOL SUCCOR [Concomitant]
  2. FUROSEMIDE. [Concomitant]
     Active Substance: FUROSEMIDE
  3. LISINOPRIL. [Concomitant]
     Active Substance: LISINOPRIL
  4. WARFARIN SODIUM. [Concomitant]
     Active Substance: WARFARIN SODIUM
  5. AMIODARONE HCL [Suspect]
     Active Substance: AMIODARONE HYDROCHLORIDE
     Indication: CARDIAC DISORDER
     Dosage: 2 PILLS @ 200MG 13 MONTHS DAILY BY MOUTH?1 PILL @ 200MG 2 MONTHS DAILY BY MOUTH
     Route: 048
     Dates: start: 201512, end: 201703
  6. AMIODARONE HCL [Suspect]
     Active Substance: AMIODARONE HYDROCHLORIDE
     Indication: IMPLANTABLE DEFIBRILLATOR INSERTION
     Dosage: 2 PILLS @ 200MG 13 MONTHS DAILY BY MOUTH?1 PILL @ 200MG 2 MONTHS DAILY BY MOUTH
     Route: 048
     Dates: start: 201512, end: 201703

REACTIONS (2)
  - Fall [None]
  - Dizziness [None]

NARRATIVE: CASE EVENT DATE: 20170312
